FAERS Safety Report 16325540 (Version 1)
Quarter: 2019Q2

REPORT INFORMATION
  Report Type: Spontaneous
  Country: US (occurrence: US)
  Receive Date: 20190517
  Receipt Date: 20190517
  Transmission Date: 20190711
  Serious: Yes (Other)
  Sender: FDA-Public Use
  Company Number: US-TEVA-2019-US-1049789

PATIENT
  Sex: Female

DRUGS (1)
  1. MEDROXYPROGESTERONE ACETATE INJECTABLE SUSPENSION [Suspect]
     Active Substance: MEDROXYPROGESTERONE ACETATE
     Route: 065

REACTIONS (1)
  - Uterine mass [Unknown]

NARRATIVE: CASE EVENT DATE: 20190508
